FAERS Safety Report 9140597 (Version 1)
Quarter: 2013Q1

REPORT INFORMATION
  Report Type: Spontaneous
  Country: US (occurrence: US)
  Receive Date: 20130305
  Receipt Date: 20130305
  Transmission Date: 20140127
  Serious: Yes (Other)
  Sender: FDA-Public Use
  Company Number: US-TEVA-389159USA

PATIENT
  Sex: Female

DRUGS (1)
  1. QUETIAPINE FUMARATE [Suspect]
     Dosage: 25 MILLIGRAM DAILY;
     Dates: start: 20130225

REACTIONS (3)
  - Loss of consciousness [Unknown]
  - Back injury [Unknown]
  - Dizziness [Unknown]
